FAERS Safety Report 5212712-0 (Version None)
Quarter: 2006Q4

REPORT INFORMATION
  Report Type: 
  Country: None (occurrence: None)
  Receive Date: 20061115
  Receipt Date: 20060827
  Transmission Date: 20070319
  Serious: Yes (Disabling)
  Sender: FDA-Public Use
  Company Number: 200615265BWH

PATIENT
  Age: 70 Year
  Sex: Male

DRUGS (3)
  1. NEXAVAR [Suspect]
     Indication: RENAL CELL CARCINOMA STAGE UNSPECIFIED
     Dosage: 400 MG, BID, ORAL
     Route: 048
     Dates: start: 20060819, end: 20060830
  2. OXYCODONE [Concomitant]
  3. SENOKOT (SENNA ALEXANDRINA) [Concomitant]

REACTIONS (7)
  - ABASIA [None]
  - BURNING SENSATION [None]
  - DYSSTASIA [None]
  - NEURALGIA [None]
  - PAIN IN EXTREMITY [None]
  - RASH [None]
  - RASH PRURITIC [None]
